FAERS Safety Report 26067950 (Version 1)
Quarter: 2025Q4

REPORT INFORMATION
  Report Type: Spontaneous
  Country: US (occurrence: US)
  Receive Date: 20251120
  Receipt Date: 20251120
  Transmission Date: 20260118
  Serious: Yes (Other)
  Sender: TEVA
  Company Number: US-TEVA-VS-3391937

PATIENT
  Age: 56 Year
  Sex: Female

DRUGS (1)
  1. NORTRIPTYLINE [Suspect]
     Active Substance: NORTRIPTYLINE
     Indication: Product used for unknown indication
     Dosage: NORTRIPTYLINE HYDROCHLORIDE
     Route: 048

REACTIONS (3)
  - Breast enlargement [Not Recovered/Not Resolved]
  - Fluid retention [Not Recovered/Not Resolved]
  - Breast pain [Not Recovered/Not Resolved]
